FAERS Safety Report 9050420 (Version 1)
Quarter: 2013Q1

REPORT INFORMATION
  Report Type: Spontaneous
  Country: US (occurrence: US)
  Receive Date: 20130205
  Receipt Date: 20130205
  Transmission Date: 20140127
  Serious: Yes (Other)
  Sender: FDA-Public Use
  Company Number: US-PFIZER INC-2013042393

PATIENT
  Sex: Female

DRUGS (2)
  1. ZOLOFT [Suspect]
     Dosage: UNK
  2. ZOLOFT [Suspect]
     Dosage: 25 MG, UNK

REACTIONS (4)
  - Convulsion [Unknown]
  - Tinnitus [Unknown]
  - Dizziness [Unknown]
  - Constipation [Unknown]
